FAERS Safety Report 23369143 (Version 6)
Quarter: 2024Q1

REPORT INFORMATION
  Report Type: Report from Study
  Country: US (occurrence: US)
  Receive Date: 20240105
  Receipt Date: 20240329
  Transmission Date: 20240409
  Serious: Yes (Other)
  Sender: FDA-Public Use
  Company Number: US-GILEAD-2024-0657281

PATIENT
  Sex: Female

DRUGS (4)
  1. AMBRISENTAN [Suspect]
     Active Substance: AMBRISENTAN
     Indication: Product used for unknown indication
     Dosage: 5 MG, QD
     Route: 065
     Dates: start: 20230321
  2. UPTRAVI [Suspect]
     Active Substance: SELEXIPAG
     Indication: Product used for unknown indication
     Dosage: 200 UG
     Route: 065
  3. ELIQUIS [Concomitant]
     Active Substance: APIXABAN
  4. PROCRIT [Concomitant]
     Active Substance: ERYTHROPOIETIN

REACTIONS (10)
  - Haematochezia [Not Recovered/Not Resolved]
  - Melaena [Not Recovered/Not Resolved]
  - Colitis [Not Recovered/Not Resolved]
  - Weight decreased [Not Recovered/Not Resolved]
  - Nausea [Not Recovered/Not Resolved]
  - Feeding disorder [Not Recovered/Not Resolved]
  - Pain [Not Recovered/Not Resolved]
  - Anaemia [Not Recovered/Not Resolved]
  - Haemorrhage [Not Recovered/Not Resolved]
  - Benign neoplasm [Unknown]
